FAERS Safety Report 24084641 (Version 1)
Quarter: 2024Q3

REPORT INFORMATION
  Report Type: Spontaneous
  Country: US (occurrence: US)
  Receive Date: 20240712
  Receipt Date: 20240712
  Transmission Date: 20241017
  Serious: Yes (Other)
  Sender: PFIZER
  Company Number: US-PFIZER INC-202400212260

PATIENT
  Age: 62 Year
  Sex: Female

DRUGS (1)
  1. TUKYSA [Suspect]
     Active Substance: TUCATINIB
     Dosage: 300 MG TWICE DAILY
     Dates: start: 20230912

REACTIONS (3)
  - Renal surgery [Unknown]
  - Asthenia [Unknown]
  - Blood potassium decreased [Unknown]
